FAERS Safety Report 13948548 (Version 5)
Quarter: 2018Q1

REPORT INFORMATION
  Report Type: Spontaneous
  Country: US (occurrence: US)
  Receive Date: 20170908
  Receipt Date: 20180129
  Transmission Date: 20180508
  Serious: No
  Sender: FDA-Public Use
  Company Number: US-LUNDBECK-DKLU2034615

PATIENT
  Age: 70 Year
  Sex: Male

DRUGS (4)
  1. NORTHERA [Suspect]
     Active Substance: DROXIDOPA
     Indication: PRODUCT USED FOR UNKNOWN INDICATION
     Route: 048
     Dates: start: 20170501
  2. NORTHERA [Suspect]
     Active Substance: DROXIDOPA
     Route: 048
     Dates: start: 201706
  3. NORTHERA [Suspect]
     Active Substance: DROXIDOPA
     Route: 065
     Dates: start: 2017, end: 20170905
  4. NORTHERA [Suspect]
     Active Substance: DROXIDOPA
     Route: 048
     Dates: start: 201705

REACTIONS (6)
  - Hypotension [Not Recovered/Not Resolved]
  - Chest pain [Unknown]
  - Headache [Unknown]
  - Therapeutic response decreased [Unknown]
  - Chest discomfort [Unknown]
  - Malaise [Unknown]

NARRATIVE: CASE EVENT DATE: 201709
